FAERS Safety Report 9666276 (Version 1)
Quarter: 2013Q4

REPORT INFORMATION
  Report Type: Spontaneous
  Country: US (occurrence: None)
  Receive Date: 20131031
  Receipt Date: 20131031
  Transmission Date: 20140711
  Serious: Yes (Other)
  Sender: FDA-Public Use
  Company Number: AUR-APL-2013-09032

PATIENT
  Age: 58 Year
  Sex: Female

DRUGS (2)
  1. AMLODIPINE (AMLODIPINE) [Suspect]
     Indication: PRODUCT USED FOR UNKNOWN INDICATION
  2. ZOLPIDEM (ZOLPIDEM) [Suspect]
     Indication: PRODUCT USED FOR UNKNOWN INDICATION

REACTIONS (7)
  - Overdose [None]
  - Cardiac failure [None]
  - Cardiogenic shock [None]
  - Atrial fibrillation [None]
  - Iatrogenic injury [None]
  - Arterial rupture [None]
  - Procedural complication [None]
